FAERS Safety Report 8222501-0 (Version None)
Quarter: 2012Q1

REPORT INFORMATION
  Report Type: 
  Country: None (occurrence: None)
  Receive Date: 20120320
  Receipt Date: 20120319
  Transmission Date: 20120608
  Serious: Yes (Death, Hospitalization)
  Sender: FDA-Public Use
  Company Number: PHHY2012AU004334

PATIENT
  Sex: Female

DRUGS (2)
  1. ZOLEDRONOC ACID [Suspect]
     Dosage: 5 MG, UNK
     Route: 042
     Dates: start: 20110304
  2. CHEMOTHERAPEUTICS [Concomitant]

REACTIONS (3)
  - SEPSIS [None]
  - NEOPLASM MALIGNANT [None]
  - BREAST CANCER [None]
